FAERS Safety Report 18242972 (Version 1)
Quarter: 2020Q3

REPORT INFORMATION
  Report Type: Spontaneous
  Country: US (occurrence: US)
  Receive Date: 20200908
  Receipt Date: 20200908
  Transmission Date: 20201103
  Serious: No
  Sender: FDA-Public Use
  Company Number: None

PATIENT
  Age: 63 Year
  Sex: Female
  Weight: 73.03 kg

DRUGS (19)
  1. CIPROFLOXACIN HCL [Concomitant]
     Active Substance: CIPROFLOXACIN HYDROCHLORIDE
  2. ALBUTEROL SULFATE HFA [Concomitant]
     Active Substance: ALBUTEROL SULFATE
  3. LINZESS [Concomitant]
     Active Substance: LINACLOTIDE
  4. PREDNISOLONE ACETATE. [Concomitant]
     Active Substance: PREDNISOLONE ACETATE
  5. PROCHLORPERAZINE MALEATE. [Concomitant]
     Active Substance: PROCHLORPERAZINE MALEATE
  6. JAKAFI [Concomitant]
     Active Substance: RUXOLITINIB
  7. FIBER DIET [Concomitant]
  8. HYDROXYUREA. [Concomitant]
     Active Substance: HYDROXYUREA
  9. SENNA?DOCUSATE SODIUM [Concomitant]
  10. LEVOTHYROXINE SODIUM. [Concomitant]
     Active Substance: LEVOTHYROXINE SODIUM
  11. AGRYLIN [Concomitant]
     Active Substance: ANAGRELIDE HYDROCHLORIDE
  12. IMITREX [Concomitant]
     Active Substance: SUMATRIPTAN SUCCINATE
  13. PEGASYS [Suspect]
     Active Substance: PEGINTERFERON ALFA-2A
     Indication: POLYCYTHAEMIA VERA
     Dosage: ?          OTHER FREQUENCY:WEEK;?
     Route: 058
     Dates: start: 20200206, end: 20200908
  14. CATAPRES [Concomitant]
     Active Substance: CLONIDINE HYDROCHLORIDE
  15. PRESERVISION AREDS 2 [Concomitant]
     Active Substance: MINERALS\VITAMINS
  16. VIVELLE?DOT [Concomitant]
     Active Substance: ESTRADIOL
  17. ASPIRIN ADULT LOW DOSE [Concomitant]
     Active Substance: ASPIRIN
  18. PROBIOTIC ACIDOPHILUS [Concomitant]
     Active Substance: LACTOBACILLUS ACIDOPHILUS
  19. VANCOCIN [Concomitant]
     Active Substance: VANCOMYCIN HYDROCHLORIDE

REACTIONS (1)
  - Headache [None]

NARRATIVE: CASE EVENT DATE: 20200908
